FAERS Safety Report 4644587-2 (Version None)
Quarter: 2005Q2

REPORT INFORMATION
  Report Type: 
  Country: None (occurrence: None)
  Receive Date: 20050425
  Receipt Date: 20050425
  Transmission Date: 20051028
  Serious: Yes (Disabling)
  Sender: FDA-Public Use
  Company Number: None

PATIENT
  Age: 51 Year
  Sex: Male
  Weight: 131.5431 kg

DRUGS (1)
  1. GENTAMICIN [Suspect]
     Indication: NECROTISING FASCIITIS
     Dosage: 240     12 HOURS   INTRAVENOU
     Route: 042
     Dates: start: 20041129, end: 20041220

REACTIONS (2)
  - DRUG TOXICITY [None]
  - VESTIBULAR DISORDER [None]
